FAERS Safety Report 15127359 (Version 1)
Quarter: 2018Q3

REPORT INFORMATION
  Report Type: Spontaneous
  Country: US (occurrence: US)
  Receive Date: 20180710
  Receipt Date: 20180710
  Transmission Date: 20181010
  Serious: No
  Sender: FDA-Public Use
  Company Number: US-LUNDBECK-DKLU2050916

PATIENT
  Age: 47 Year
  Sex: Female

DRUGS (2)
  1. NORTHERA [Suspect]
     Active Substance: DROXIDOPA
     Route: 048
     Dates: start: 20180622, end: 20180624
  2. NORTHERA [Suspect]
     Active Substance: DROXIDOPA
     Indication: AUTOIMMUNE HAEMOLYTIC ANAEMIA
     Route: 048
     Dates: start: 20180620, end: 20180622

REACTIONS (3)
  - Heart rate increased [Unknown]
  - Blood pressure decreased [Unknown]
  - Malaise [Unknown]

NARRATIVE: CASE EVENT DATE: 20180624
